FAERS Safety Report 23668906 (Version 4)
Quarter: 2025Q3

REPORT INFORMATION
  Report Type: Report from Study
  Country: CA (occurrence: CA)
  Receive Date: 20240325
  Receipt Date: 20250909
  Transmission Date: 20251021
  Serious: Yes (Hospitalization, Other)
  Sender: TAKEDA
  Company Number: CA-TAKEDA-2024TUS026496

PATIENT
  Sex: Female

DRUGS (12)
  1. VEDOLIZUMAB [Suspect]
     Active Substance: VEDOLIZUMAB
     Indication: Crohn^s disease
  2. VEDOLIZUMAB [Suspect]
     Active Substance: VEDOLIZUMAB
  3. VEDOLIZUMAB [Suspect]
     Active Substance: VEDOLIZUMAB
  4. VEDOLIZUMAB [Suspect]
     Active Substance: VEDOLIZUMAB
  5. VEDOLIZUMAB [Suspect]
     Active Substance: VEDOLIZUMAB
  6. VEDOLIZUMAB [Suspect]
     Active Substance: VEDOLIZUMAB
  7. PANTOPRAZOLE SODIUM [Suspect]
     Active Substance: PANTOPRAZOLE SODIUM
     Indication: Product used for unknown indication
  8. PAROXETINE [Concomitant]
     Active Substance: PAROXETINE
  9. METFORMIN [Concomitant]
     Active Substance: METFORMIN HYDROCHLORIDE
  10. OZEMPIC [Concomitant]
     Active Substance: SEMAGLUTIDE
  11. NOVORAPID [Concomitant]
     Active Substance: INSULIN ASPART
  12. EPIPEN [Concomitant]
     Active Substance: EPINEPHRINE

REACTIONS (6)
  - Renal injury [Recovering/Resolving]
  - Device related infection [Recovering/Resolving]
  - Nephrolithiasis [Recovering/Resolving]
  - Infusion site extravasation [Unknown]
  - Vein collapse [Unknown]
  - Infusion site pain [Unknown]
